FAERS Safety Report 6888449-9 (Version None)
Quarter: 2010Q3

REPORT INFORMATION
  Report Type: 
  Country: None (occurrence: None)
  Receive Date: 20100730
  Receipt Date: 20100727
  Transmission Date: 20110219
  Serious: Yes (Death, Other)
  Sender: FDA-Public Use
  Company Number: MX-ELI_LILLY_AND_COMPANY-MX201007006851

PATIENT
  Age: 54 Year
  Sex: Male
  Weight: 90 kg

DRUGS (3)
  1. HUMALOG MIX 75/25 [Suspect]
     Dosage: 20 IU, EACH MORNING
     Route: 058
     Dates: start: 20100125
  2. HUMALOG MIX 75/25 [Suspect]
     Dosage: 10 IU, EACH EVENING
     Route: 058
     Dates: start: 20100125
  3. AMLODIPINE [Concomitant]

REACTIONS (1)
  - MYOCARDIAL INFARCTION [None]
